FAERS Safety Report 18974419 (Version 2)
Quarter: 2021Q2

REPORT INFORMATION
  Report Type: Spontaneous
  Country: FR (occurrence: FR)
  Receive Date: 20210305
  Receipt Date: 20210405
  Transmission Date: 20210717
  Serious: Yes (Death)
  Sender: FDA-Public Use
  Company Number: FR-ELI_LILLY_AND_COMPANY-FR202103001877

PATIENT
  Age: 93 Year
  Sex: Male

DRUGS (3)
  1. KARDEGIC [Suspect]
     Active Substance: ASPIRIN DL-LYSINE
     Indication: CARDIOVASCULAR EVENT PROPHYLAXIS
     Dosage: 1 DOSAGE FORM, DAILY
     Route: 048
     Dates: end: 20210218
  2. FLUOXETINE [Suspect]
     Active Substance: FLUOXETINE HYDROCHLORIDE
     Indication: MIXED ANXIETY AND DEPRESSIVE DISORDER
     Dosage: 10 MG, DAILY
     Route: 048
     Dates: end: 20210218
  3. BROMAZEPAM [Suspect]
     Active Substance: BROMAZEPAM
     Indication: MIXED ANXIETY AND DEPRESSIVE DISORDER
     Dosage: 2 DOSAGE FORM, DAILY
     Route: 048
     Dates: end: 20210218

REACTIONS (1)
  - Fall [Fatal]

NARRATIVE: CASE EVENT DATE: 20210211
